FAERS Safety Report 5189772-9 (Version None)
Quarter: 2006Q4

REPORT INFORMATION
  Report Type: 
  Country: None (occurrence: None)
  Receive Date: 20061218
  Receipt Date: 20061003
  Transmission Date: 20070319
  Serious: Yes (Hospitalization, Other)
  Sender: FDA-Public Use
  Company Number: 2005137734

PATIENT
  Age: 47 Year
  Sex: Female

DRUGS (1)
  1. DINOPROSTONE GEL (DINOPROSTONE) [Suspect]
     Indication: LABOUR INDUCTION
     Dosage: 0.25 MG (0.25 MG, SINGLE)

REACTIONS (7)
  - ANAEMIA POSTOPERATIVE [None]
  - CAESAREAN SECTION [None]
  - DRUG EXPOSURE DURING PREGNANCY [None]
  - DYSPNOEA [None]
  - HAEMORRHAGE [None]
  - HYPOCOAGULABLE STATE [None]
  - THROMBOCYTOPENIA [None]
